FAERS Safety Report 4649823-4 (Version None)
Quarter: 2005Q2

REPORT INFORMATION
  Report Type: 
  Country: None (occurrence: None)
  Receive Date: 20050428
  Receipt Date: 20050407
  Transmission Date: 20051028
  Serious: Yes (Hospitalization)
  Sender: FDA-Public Use
  Company Number: 800336

PATIENT
  Age: 50 Year
  Sex: Male

DRUGS (1)
  1. EXTRANEAL [Suspect]

REACTIONS (4)
  - BLOOD GLUCOSE DECREASED [None]
  - HYPERHIDROSIS [None]
  - LOCALISED INFECTION [None]
  - SYNCOPE [None]
